FAERS Safety Report 5277169-2 (Version None)
Quarter: 2007Q1

REPORT INFORMATION
  Report Type: 
  Country: None (occurrence: None)
  Receive Date: 20070322
  Receipt Date: 20070322
  Transmission Date: 20070707
  Serious: Yes (Other)
  Sender: FDA-Public Use
  Company Number: None

PATIENT
  Sex: Female
  Weight: 86.1834 kg

DRUGS (1)
  1. AUGMENTIN '125' [Suspect]
     Indication: SUBCUTANEOUS ABSCESS
     Dosage: 1000 MG 2 TABS PO BID PO
     Route: 048
     Dates: start: 20070203, end: 20070206

REACTIONS (2)
  - HEADACHE [None]
  - PYREXIA [None]
